FAERS Safety Report 13152089 (Version 1)
Quarter: 2017Q1

REPORT INFORMATION
  Report Type: Report from Study
  Country: None (occurrence: US)
  Receive Date: 20170125
  Receipt Date: 20170125
  Transmission Date: 20170428
  Serious: Yes (Hospitalization, Other)
  Sender: FDA-Public Use
  Company Number: US-ABBVIE-17P-163-1844082-00

PATIENT
  Age: 69 Year
  Sex: Male

DRUGS (1)
  1. HUMIRA [Suspect]
     Active Substance: ADALIMUMAB
     Indication: COLITIS ULCERATIVE
     Route: 058
     Dates: end: 20161220

REACTIONS (6)
  - Blood pressure decreased [Unknown]
  - Aortic aneurysm [Unknown]
  - Road traffic accident [Unknown]
  - Loss of consciousness [Unknown]
  - Mitral valve disease [Unknown]
  - Vertigo [Unknown]

NARRATIVE: CASE EVENT DATE: 20161212
